FAERS Safety Report 23940450 (Version 1)
Quarter: 2024Q2

REPORT INFORMATION
  Report Type: Spontaneous
  Country: US (occurrence: US)
  Receive Date: 20240605
  Receipt Date: 20240605
  Transmission Date: 20240715
  Serious: No
  Sender: FDA-Public Use
  Company Number: US-AMNEAL PHARMACEUTICALS-2024-AMRX-01862

PATIENT

DRUGS (1)
  1. DIFLUPREDNATE [Suspect]
     Active Substance: DIFLUPREDNATE
     Indication: Product used for unknown indication
     Dosage: UNK
     Route: 047
     Dates: start: 20240322

REACTIONS (2)
  - Device defective [Unknown]
  - No adverse event [Unknown]

NARRATIVE: CASE EVENT DATE: 20240322
